APPROVED DRUG PRODUCT: ZOLEDRONIC ACID
Active Ingredient: ZOLEDRONIC ACID
Strength: EQ 4MG BASE/5ML
Dosage Form/Route: INJECTABLE;INTRAVENOUS
Application: A202746 | Product #001
Applicant: SUN PHARMA GLOBAL FZE
Approved: Mar 4, 2013 | RLD: No | RS: No | Type: DISCN